FAERS Safety Report 10086168 (Version 1)
Quarter: 2014Q2

REPORT INFORMATION
  Report Type: Spontaneous
  Country: US (occurrence: None)
  Receive Date: 20140417
  Receipt Date: 20140417
  Transmission Date: 20141212
  Serious: Yes (Death)
  Sender: FDA-Public Use
  Company Number: None

PATIENT
  Age: 57 Year
  Sex: Female
  Weight: 48.08 kg

DRUGS (14)
  1. PCI32765 [Suspect]
     Indication: CHRONIC LYMPHOCYTIC LEUKAEMIA
     Dates: start: 20120816, end: 20130704
  2. LORAZEPAM [Concomitant]
  3. NADALOL [Concomitant]
  4. CALCIUM/MAGNESIUM/ZINC SUPPLEMENT [Concomitant]
  5. ZOLPIDEM [Concomitant]
  6. ACETAMINOPHEN [Concomitant]
  7. SPIRINOLACTONE [Concomitant]
  8. VITAMIN D3 [Concomitant]
  9. OMEPRAZOLE [Concomitant]
  10. LEVOTHYROXINE SODIUM [Concomitant]
  11. RIFAXIMIN [Concomitant]
  12. DOCUSATE [Concomitant]
  13. VALACYCLOVIR [Concomitant]
  14. OXYCODONE [Concomitant]

REACTIONS (2)
  - Progressive multifocal leukoencephalopathy [None]
  - Platelet count decreased [None]
